FAERS Safety Report 11908605 (Version 2)
Quarter: 2016Q1

REPORT INFORMATION
  Report Type: Report from Study
  Country: US (occurrence: US)
  Receive Date: 20160111
  Receipt Date: 20160114
  Transmission Date: 20160526
  Serious: Yes (Death, Other)
  Sender: FDA-Public Use
  Company Number: US-GILEAD-2016-0191765

PATIENT
  Age: 68 Year
  Sex: Female

DRUGS (2)
  1. IDELALISIB [Suspect]
     Active Substance: IDELALISIB
     Indication: CHRONIC LYMPHOCYTIC LEUKAEMIA
     Dosage: 100 MG, QOD
     Route: 048
     Dates: start: 20150317
  2. IDELALISIB [Suspect]
     Active Substance: IDELALISIB
     Dosage: 200 MG, QOD
     Route: 048
     Dates: start: 20150317

REACTIONS (2)
  - Death [Fatal]
  - Off label use [Unknown]
